FAERS Safety Report 20140987 (Version 1)
Quarter: 2021Q4

REPORT INFORMATION
  Report Type: Spontaneous
  Country: CA (occurrence: CA)
  Receive Date: 20211202
  Receipt Date: 20211202
  Transmission Date: 20220303
  Serious: Yes (Death, Life-Threatening)
  Sender: FDA-Public Use
  Company Number: CA-TEVA-2021-CA-1981511

PATIENT
  Age: 67 Year
  Sex: Female

DRUGS (1)
  1. ETOPOSIDE [Suspect]
     Active Substance: ETOPOSIDE
     Dosage: 160 MILLIGRAM DAILY;
     Route: 042

REACTIONS (5)
  - Acute kidney injury [Fatal]
  - Acute myocardial infarction [Fatal]
  - Confusional state [Fatal]
  - Fall [Fatal]
  - Product quality issue [Fatal]
